FAERS Safety Report 8431259-1 (Version None)
Quarter: 2012Q2

REPORT INFORMATION
  Report Type: 
  Country: None (occurrence: None)
  Receive Date: 20120613
  Receipt Date: 20120531
  Transmission Date: 20120825
  Serious: Yes (Death, Hospitalization, Other)
  Sender: FDA-Public Use
  Company Number: US-PAR PHARMACEUTICAL, INC-2012SCPR004431

PATIENT

DRUGS (5)
  1. BUPROPION HCL [Suspect]
     Indication: PRODUCT USED FOR UNKNOWN INDICATION
     Dosage: UNK, UNKNOWN
     Route: 048
  2. CITALOPRAM [Suspect]
     Indication: PRODUCT USED FOR UNKNOWN INDICATION
     Dosage: UNK, UNKNOWN
     Route: 048
  3. ALCOHOL [Suspect]
     Indication: PRODUCT USED FOR UNKNOWN INDICATION
     Dosage: UNK, UNKNOWN
     Route: 065
  4. CLONAZEPAM [Concomitant]
     Indication: PRODUCT USED FOR UNKNOWN INDICATION
     Dosage: UNK, UNKNOWN
     Route: 048
  5. TRAZODONE HCL [Suspect]
     Indication: PRODUCT USED FOR UNKNOWN INDICATION
     Dosage: UNK, UNKNOWN
     Route: 048

REACTIONS (18)
  - CARDIOTOXICITY [None]
  - TOXICITY TO VARIOUS AGENTS [None]
  - PULSELESS ELECTRICAL ACTIVITY [None]
  - PERIPHERAL COLDNESS [None]
  - ELECTROCARDIOGRAM QRS COMPLEX PROLONGED [None]
  - ELECTROCARDIOGRAM QT PROLONGED [None]
  - HYPOTENSION [None]
  - UNRESPONSIVE TO STIMULI [None]
  - PUPIL FIXED [None]
  - FLUSHING [None]
  - DEPRESSED LEVEL OF CONSCIOUSNESS [None]
  - VENTRICULAR TACHYCARDIA [None]
  - AREFLEXIA [None]
  - BEZOAR [None]
  - MULTIPLE DRUG OVERDOSE INTENTIONAL [None]
  - DEATH [None]
  - MIOSIS [None]
  - GRAND MAL CONVULSION [None]
